FAERS Safety Report 19736107 (Version 2)
Quarter: 2022Q4

REPORT INFORMATION
  Report Type: Report from Study
  Country: GB (occurrence: GB)
  Receive Date: 20210823
  Receipt Date: 20221220
  Transmission Date: 20230112
  Serious: Yes (Hospitalization, Other)
  Sender: FDA-Public Use
  Company Number: GB-NOVARTISPH-NVSC2021GB186978

PATIENT
  Sex: Female

DRUGS (1)
  1. COSENTYX [Suspect]
     Active Substance: SECUKINUMAB
     Indication: Psoriatic arthropathy
     Dosage: 150 MG, QMO
     Route: 058

REACTIONS (6)
  - Cerebral haemorrhage [Unknown]
  - Road traffic accident [Unknown]
  - Brain injury [Unknown]
  - Memory impairment [Unknown]
  - Glaucoma [Unknown]
  - Pain [Not Recovered/Not Resolved]
